FAERS Safety Report 8922768 (Version 3)
Quarter: 2013Q2

REPORT INFORMATION
  Report Type: Spontaneous
  Country: JP (occurrence: JP)
  Receive Date: 20121123
  Receipt Date: 20130415
  Transmission Date: 20140414
  Serious: Yes (Other)
  Sender: FDA-Public Use
  Company Number: PHHY2012JP105282

PATIENT
  Age: 40 Year
  Sex: Female

DRUGS (3)
  1. SANDOSTATINE LAR [Suspect]
     Indication: PANCREATIC NEUROENDOCRINE TUMOUR
     Dosage: 20 MG, DAILY
     Route: 030
  2. SANDOSTATINE LAR [Suspect]
     Dosage: 30 MG, DAILY
     Route: 030
  3. AFINITOR [Concomitant]
     Indication: PANCREATIC NEUROENDOCRINE TUMOUR
     Route: 048

REACTIONS (2)
  - Oesophageal varices haemorrhage [Unknown]
  - Gastric varices haemorrhage [Unknown]
